FAERS Safety Report 19350393 (Version 1)
Quarter: 2021Q2

REPORT INFORMATION
  Report Type: Spontaneous
  Country: GB (occurrence: GB)
  Receive Date: 20210531
  Receipt Date: 20210531
  Transmission Date: 20210717
  Serious: Yes (Hospitalization)
  Sender: FDA-Public Use
  Company Number: GB-AMGEN-GBRCT2021081452

PATIENT
  Age: 55 Year
  Sex: Male
  Weight: 131 kg

DRUGS (24)
  1. ATEZOLIZUMAB. [Suspect]
     Active Substance: ATEZOLIZUMAB
     Dosage: 1200 MILLIGRAM, Q3WK (24/JUL/2020: DATE OF MOST RECENT DOSE OF ATEZOLIZUMAB PRIOR TO SAE ONSET)
     Route: 042
     Dates: start: 20191206
  2. ATEZOLIZUMAB. [Suspect]
     Active Substance: ATEZOLIZUMAB
     Dosage: 1200 MILLIGRAM, Q3WK (24/JUL/2020: DATE OF MOST RECENT DOSE OF ATEZOLIZUMAB PRIOR TO SAE ONSET)
     Route: 042
     Dates: start: 20200228
  3. ATEZOLIZUMAB. [Suspect]
     Active Substance: ATEZOLIZUMAB
     Dosage: 1200 MILLIGRAM, Q3WK (24/JUL/2020: DATE OF MOST RECENT DOSE OF ATEZOLIZUMAB PRIOR TO SAE ONSET)
     Route: 042
     Dates: start: 20200320
  4. ATEZOLIZUMAB. [Suspect]
     Active Substance: ATEZOLIZUMAB
     Dosage: 1200 MILLIGRAM, Q3WK (24/JUL/2020: DATE OF MOST RECENT DOSE OF ATEZOLIZUMAB PRIOR TO SAE ONSET)
     Route: 042
     Dates: start: 20200501
  5. ATEZOLIZUMAB. [Suspect]
     Active Substance: ATEZOLIZUMAB
     Dosage: 1200 MILLIGRAM, Q3WK (24/JUL/2020: DATE OF MOST RECENT DOSE OF ATEZOLIZUMAB PRIOR TO SAE ONSET)
     Route: 042
     Dates: start: 20200117
  6. ATEZOLIZUMAB. [Suspect]
     Active Substance: ATEZOLIZUMAB
     Dosage: 1200 MILLIGRAM, Q3WK (24/JUL/2020: DATE OF MOST RECENT DOSE OF ATEZOLIZUMAB PRIOR TO SAE ONSET)
     Route: 042
     Dates: start: 20200612
  7. ATEZOLIZUMAB. [Suspect]
     Active Substance: ATEZOLIZUMAB
     Dosage: 1200 MILLIGRAM, Q3WK (24/JUL/2020: DATE OF MOST RECENT DOSE OF ATEZOLIZUMAB PRIOR TO SAE ONSET)
     Route: 042
     Dates: start: 20200703
  8. AUGMENTIN [Concomitant]
     Active Substance: AMOXICILLIN\CLAVULANATE POTASSIUM
     Indication: PYREXIA
     Dosage: UNK UNK, TID
     Route: 065
     Dates: start: 20191120, end: 20191127
  9. DOXAZOSIN [Concomitant]
     Active Substance: DOXAZOSIN MESYLATE
     Dosage: UNK UNK, QD
     Route: 065
     Dates: start: 202004, end: 20200808
  10. ERLOTINIB [Concomitant]
     Active Substance: ERLOTINIB
     Indication: NEOPLASM MALIGNANT
     Dosage: UNK
  11. SPIRONOLACTONE. [Concomitant]
     Active Substance: SPIRONOLACTONE
     Dosage: UNK UNK, QD
     Route: 065
     Dates: start: 20200809, end: 20200818
  12. METFORMIN [Concomitant]
     Active Substance: METFORMIN HYDROCHLORIDE
     Indication: TYPE 2 DIABETES MELLITUS
     Dosage: UNK UNK, BID
     Route: 048
     Dates: end: 20200731
  13. BEVACIZUMAB. [Suspect]
     Active Substance: BEVACIZUMAB
     Indication: NON-SMALL CELL LUNG CANCER
     Dosage: 1700 MILLIGRAM
     Route: 042
     Dates: start: 20191115
  14. AMLODIPINE [Concomitant]
     Active Substance: AMLODIPINE BESYLATE
     Indication: HYPERTENSION
     Dosage: UNK UNK, QD
     Route: 065
     Dates: start: 20201013, end: 20201013
  15. BECLOMETHASONE [BECLOMETASONE] [Concomitant]
     Active Substance: BECLOMETHASONE
     Indication: ASTHMA
     Dosage: UNK UNK, AS NECESSARY
     Route: 065
  16. CARBOPLATIN. [Suspect]
     Active Substance: CARBOPLATIN
     Indication: NON-SMALL CELL LUNG CANCER
     Dosage: 768 MILLIGRAM
     Route: 065
     Dates: start: 20191115
  17. SITAGLIPTIN [Concomitant]
     Active Substance: SITAGLIPTIN
     Indication: TYPE 2 DIABETES MELLITUS
     Dosage: UNK UNK, QD
     Route: 065
     Dates: start: 202007
  18. PACLITAXEL. [Suspect]
     Active Substance: PACLITAXEL
     Indication: NON-SMALL CELL LUNG CANCER
     Dosage: 350 MILLIGRAM
     Route: 065
     Dates: start: 20191115
  19. SALBUTAMOL [Concomitant]
     Active Substance: ALBUTEROL
     Indication: ASTHMA
     Dosage: UNK
  20. ATEZOLIZUMAB. [Suspect]
     Active Substance: ATEZOLIZUMAB
     Indication: NON-SMALL CELL LUNG CANCER
     Dosage: 1200 MILLIGRAM, Q3WK (24/JUL/2020: DATE OF MOST RECENT DOSE OF ATEZOLIZUMAB PRIOR TO SAE ONSET)
     Route: 042
     Dates: start: 20191115
  21. ATEZOLIZUMAB. [Suspect]
     Active Substance: ATEZOLIZUMAB
     Dosage: 1200 MILLIGRAM, Q3WK (24/JUL/2020: DATE OF MOST RECENT DOSE OF ATEZOLIZUMAB PRIOR TO SAE ONSET)
     Route: 042
     Dates: start: 20191227
  22. ATEZOLIZUMAB. [Suspect]
     Active Substance: ATEZOLIZUMAB
     Dosage: 1200 MILLIGRAM, Q3WK (24/JUL/2020: DATE OF MOST RECENT DOSE OF ATEZOLIZUMAB PRIOR TO SAE ONSET)
     Route: 042
     Dates: start: 20200207
  23. LOSARTAN. [Concomitant]
     Active Substance: LOSARTAN
     Dosage: UNK UNK, QD
     Route: 065
     Dates: start: 202006, end: 20200808
  24. MORPHINE [Concomitant]
     Active Substance: MORPHINE
     Dosage: UNK UNK, AS NECESSARY
     Route: 065
     Dates: start: 20200809, end: 20200814

REACTIONS (4)
  - Proteinuria [Recovered/Resolved]
  - Oedema peripheral [Recovered/Resolved]
  - Left ventricular dysfunction [Unknown]
  - Cough [Recovered/Resolved]

NARRATIVE: CASE EVENT DATE: 202005
